FAERS Safety Report 20442436 (Version 1)
Quarter: 2022Q1

REPORT INFORMATION
  Report Type: Spontaneous
  Country: US (occurrence: US)
  Receive Date: 20220208
  Receipt Date: 20220208
  Transmission Date: 20220424
  Serious: No
  Sender: FDA-Public Use
  Company Number: US-ALLERGAN-2120156US

PATIENT
  Sex: Female

DRUGS (3)
  1. VIIBRYD [Suspect]
     Active Substance: VILAZODONE HYDROCHLORIDE
     Indication: Product used for unknown indication
     Dosage: UNK
     Dates: start: 201910
  2. DUPIXENT [Suspect]
     Active Substance: DUPILUMAB
     Indication: Asthma
     Dosage: ACTUAL: 300 MG, QOW(ADMINISTERED VIA PRE-FILLED SYRINGE)
     Route: 058
     Dates: start: 201908
  3. DUPIXENT [Suspect]
     Active Substance: DUPILUMAB
     Indication: Chronic obstructive pulmonary disease

REACTIONS (5)
  - Diarrhoea [Unknown]
  - Bowel movement irregularity [Unknown]
  - Faeces discoloured [Unknown]
  - Steatorrhoea [Unknown]
  - Insomnia [Unknown]

NARRATIVE: CASE EVENT DATE: 20190101
